FAERS Safety Report 5759881-1 (Version None)
Quarter: 2008Q2

REPORT INFORMATION
  Report Type: 
  Country: None (occurrence: None)
  Receive Date: 20080605
  Receipt Date: 20080529
  Transmission Date: 20081010
  Serious: Yes (Hospitalization)
  Sender: FDA-Public Use
  Company Number: PHHY2008JP08519

PATIENT
  Age: 50 Year
  Sex: Male

DRUGS (1)
  1. DICLOFENAC SODIUM [Suspect]
     Indication: PYREXIA
     Dosage: UNK
     Route: 048

REACTIONS (9)
  - ABSCESS [None]
  - BRAIN ABSCESS [None]
  - HEADACHE [None]
  - INFECTION [None]
  - MYOSITIS [None]
  - PERIODONTITIS [None]
  - SUBDURAL EMPYEMA [None]
  - TOOTH EXTRACTION [None]
  - VOMITING [None]
